FAERS Safety Report 7032587-7 (Version None)
Quarter: 2010Q4

REPORT INFORMATION
  Report Type: 
  Country: None (occurrence: None)
  Receive Date: 20101004
  Receipt Date: 20100921
  Transmission Date: 20110411
  Serious: Yes (Death)
  Sender: FDA-Public Use
  Company Number: 0213788

PATIENT
  Age: 86 Year
  Sex: Male

DRUGS (1)
  1. TACHOSIL [Suspect]
     Indication: INCISION SITE HAEMORRHAGE
     Dosage: TOPICAL
     Route: 061
     Dates: start: 20100827, end: 20100827

REACTIONS (2)
  - ATRIAL FIBRILLATION [None]
  - SHOCK [None]
